FAERS Safety Report 9659169 (Version 2)
Quarter: 2013Q4

REPORT INFORMATION
  Report Type: Spontaneous
  Country: US (occurrence: US)
  Receive Date: 20131031
  Receipt Date: 20131121
  Transmission Date: 20140711
  Serious: No
  Sender: FDA-Public Use
  Company Number: US-009507513-1310USA008087

PATIENT
  Age: 28 Year
  Sex: Female
  Weight: 69.39 kg

DRUGS (1)
  1. NEXPLANON [Suspect]
     Indication: CONTRACEPTION
     Dosage: 68 MG, UNK
     Route: 059
     Dates: start: 20130821, end: 20131009

REACTIONS (10)
  - Suicidal ideation [Unknown]
  - Haemorrhage [Recovering/Resolving]
  - Screaming [Unknown]
  - Crying [Unknown]
  - Mood altered [Unknown]
  - Headache [Unknown]
  - Back pain [Recovering/Resolving]
  - Fatigue [Unknown]
  - Anxiety [Unknown]
  - Mood swings [Unknown]
